FAERS Safety Report 10085033 (Version 2)
Quarter: 2014Q2

REPORT INFORMATION
  Report Type: Spontaneous
  Country: IT (occurrence: IT)
  Receive Date: 20140417
  Receipt Date: 20140519
  Transmission Date: 20141212
  Serious: Yes (Hospitalization)
  Sender: FDA-Public Use
  Company Number: IT-PFIZER INC-2014106052

PATIENT
  Age: 84 Year
  Sex: Male
  Weight: 80 kg

DRUGS (3)
  1. LYRICA [Suspect]
     Indication: SCIATICA
     Dosage: 75 MG, 2X/DAY
     Route: 048
     Dates: start: 20131228, end: 20131228
  2. PALEXIA [Concomitant]
     Indication: SCIATICA
     Dosage: 100 MG, DAILY
     Route: 048
     Dates: start: 20131225, end: 20131229
  3. VALIUM [Concomitant]
     Dosage: 30 GTT, UNK
     Route: 048

REACTIONS (2)
  - Sopor [Recovered/Resolved]
  - Miosis [Recovered/Resolved]
